FAERS Safety Report 7901482-0 (Version None)
Quarter: 2011Q4

REPORT INFORMATION
  Report Type: 
  Country: None (occurrence: None)
  Receive Date: 20111108
  Receipt Date: 20111031
  Transmission Date: 20120403
  Serious: Yes (Death, Other)
  Sender: FDA-Public Use
  Company Number: US-BAYER-2011-035490

PATIENT
  Age: 31 Year
  Sex: Female
  Weight: 100 kg

DRUGS (4)
  1. ALPRAZOLAM [Concomitant]
     Indication: ANXIETY
     Dosage: 0.25 MG, PRN
     Route: 048
  2. MAXALT [Concomitant]
     Indication: HEADACHE
     Dosage: 10 MG, PRN
     Route: 048
  3. YAZ [Suspect]
     Dosage: UNK
     Dates: start: 20080801, end: 20090331
  4. ACETAMINOPHEN AND HYDROCODONE BITARTRATE [Concomitant]
     Indication: HEADACHE
     Dosage: UNK UNK, PRN
     Route: 048

REACTIONS (10)
  - PULMONARY INFARCTION [None]
  - TACHYCARDIA [None]
  - RESPIRATORY FAILURE [None]
  - ACUTE LUNG INJURY [None]
  - DEEP VEIN THROMBOSIS [None]
  - HYPERVENTILATION [None]
  - PULMONARY EMBOLISM [None]
  - CARDIOGENIC SHOCK [None]
  - RESPIRATORY DISTRESS [None]
  - PAIN [None]
